FAERS Safety Report 6930792-9 (Version None)
Quarter: 2010Q3

REPORT INFORMATION
  Report Type: 
  Country: None (occurrence: None)
  Receive Date: 20100817
  Receipt Date: 20100817
  Transmission Date: 20110219
  Serious: Yes (Death)
  Sender: FDA-Public Use
  Company Number: None

PATIENT
  Age: 56 Year
  Sex: Female
  Weight: 116.1208 kg

DRUGS (1)
  1. CLINDAMYCIN [Suspect]
     Indication: ANTIBIOTIC PROPHYLAXIS
     Dosage: 1 CAPSULE EVERY 6 HOURS PO; SEVERAL DAYS
     Route: 048
     Dates: start: 20100414, end: 20100420

REACTIONS (1)
  - CLOSTRIDIUM DIFFICILE SEPSIS [None]
